FAERS Safety Report 12186319 (Version 3)
Quarter: 2016Q2

REPORT INFORMATION
  Report Type: Spontaneous
  Country: KR (occurrence: KR)
  Receive Date: 20160317
  Receipt Date: 20160615
  Transmission Date: 20160815
  Serious: Yes (Hospitalization)
  Sender: FDA-Public Use
  Company Number: KR-009507513-1603KOR007200

PATIENT
  Age: 65 Year
  Sex: Male
  Weight: 50.4 kg

DRUGS (12)
  1. SANCUSO [Concomitant]
     Active Substance: GRANISETRON
     Indication: PROPHYLAXIS OF NAUSEA AND VOMITING
     Dosage: 34.3 MG ONCE (80.2 X 66.6 MM2)
     Route: 062
     Dates: start: 20160125, end: 20160125
  2. ENTELON [Concomitant]
     Indication: PROPHYLAXIS
     Dosage: 150 MG, BID
     Route: 048
     Dates: start: 20160109, end: 20160301
  3. CISPLATIN. [Concomitant]
     Active Substance: CISPLATIN
     Indication: HYPOPHARYNGEAL CANCER
     Dosage: 150 MG, ONCE
     Route: 042
     Dates: start: 20160126, end: 20160126
  4. EMEND (FOSAPREPITANT DIMEGLUMINE) [Suspect]
     Active Substance: FOSAPREPITANT DIMEGLUMINE
     Indication: PROPHYLAXIS OF NAUSEA AND VOMITING
     Dosage: 150 MG, ONCE
     Route: 042
     Dates: start: 20160126, end: 20160126
  5. DEXAMETHASONE SODIUM PHOSPHATE. [Concomitant]
     Active Substance: DEXAMETHASONE SODIUM PHOSPHATE
     Indication: PROPHYLAXIS OF NAUSEA AND VOMITING
     Dosage: 12 MG, ONCE (STRENGTH: 5MG/ML)
     Route: 042
     Dates: start: 20160126, end: 20160126
  6. DEXAMETHASONE SODIUM PHOSPHATE. [Concomitant]
     Active Substance: DEXAMETHASONE SODIUM PHOSPHATE
     Dosage: 8 MG, BID (STRENGTH: 5MG/ML)
     Route: 042
     Dates: start: 20160128, end: 20160129
  7. LASIX [Concomitant]
     Active Substance: FUROSEMIDE
     Indication: DRUG TOXICITY PROPHYLAXIS
     Dosage: 20 MG, ONCE (STRENGTH 20MG/2ML)
     Route: 042
     Dates: start: 20160126, end: 20160126
  8. ESOMEZOL (ESOMEPRAZOLE STRONTIUM) [Concomitant]
     Indication: GASTRITIS PROPHYLAXIS
     Dosage: 20 MG, QD
     Route: 048
     Dates: start: 20160109, end: 20160301
  9. GANAKHAN [Concomitant]
     Indication: PROPHYLAXIS
     Dosage: 50 MG, TID
     Route: 048
     Dates: start: 20160125, end: 20160226
  10. DEXAMETHASONE SODIUM PHOSPHATE. [Concomitant]
     Active Substance: DEXAMETHASONE SODIUM PHOSPHATE
     Dosage: 8 MG, ONCE (STRENGTH: 5MG/ML)
     Route: 042
     Dates: start: 20160127, end: 20160127
  11. MANNITOL. [Concomitant]
     Active Substance: MANNITOL
     Indication: DRUG TOXICITY PROPHYLAXIS
     Dosage: 100 ML, ONCE
     Route: 042
     Dates: start: 20160126, end: 20160126
  12. CISPLATIN. [Concomitant]
     Active Substance: CISPLATIN
     Indication: HYPOPHARYNGEAL CANCER
     Dosage: 12 MG, ONCE
     Route: 042
     Dates: start: 20160126, end: 20160126

REACTIONS (1)
  - Post procedural infection [Recovered/Resolved]

NARRATIVE: CASE EVENT DATE: 20160201
